FAERS Safety Report 9155281 (Version 3)
Quarter: 2013Q3

REPORT INFORMATION
  Report Type: Report from Study
  Country: DE (occurrence: DE)
  Receive Date: 20130311
  Receipt Date: 20130718
  Transmission Date: 20140515
  Serious: Yes (Hospitalization)
  Sender: FDA-Public Use
  Company Number: DE-NOVOPROD-372684

PATIENT
  Age: 10 Year
  Sex: Female
  Weight: 39.3 kg

DRUGS (3)
  1. NORDITROPIN [Suspect]
     Indication: TURNER^S SYNDROME
     Dosage: 1.5 MG, QD
     Route: 058
     Dates: start: 20040720, end: 20100727
  2. NORDITROPIN [Suspect]
     Dosage: UNK
     Route: 058
  3. JODID [Concomitant]
     Indication: HYPOTHYROIDISM
     Dosage: 100 ?G, QD
     Route: 048
     Dates: start: 20080730

REACTIONS (1)
  - Hypertension [Not Recovered/Not Resolved]
